FAERS Safety Report 8922993 (Version 1)
Quarter: 2012Q4

REPORT INFORMATION
  Report Type: Spontaneous
  Country: US (occurrence: None)
  Receive Date: 20121115
  Receipt Date: 20121115
  Transmission Date: 20130627
  Serious: Yes (Life-Threatening, Hospitalization)
  Sender: FDA-Public Use
  Company Number: None

PATIENT
  Age: 74 Year
  Sex: Male
  Weight: 81.1 kg

DRUGS (1)
  1. PACLITAXEL [Suspect]
     Indication: LUNG CANCER
     Route: 042
     Dates: start: 20121107, end: 20121107

REACTIONS (7)
  - Hypertension [None]
  - Tachycardia [None]
  - Dyspnoea [None]
  - Cyanosis [None]
  - Pulse absent [None]
  - Resuscitation [None]
  - Infusion related reaction [None]
